FAERS Safety Report 21283880 (Version 2)
Quarter: 2022Q4

REPORT INFORMATION
  Report Type: Spontaneous
  Country: AU (occurrence: AU)
  Receive Date: 20220901
  Receipt Date: 20221128
  Transmission Date: 20230113
  Serious: Yes (Hospitalization, Other)
  Sender: FDA-Public Use
  Company Number: AU-ALLERGAN-2228321US

PATIENT
  Sex: Male

DRUGS (20)
  1. ASENAPINE MALEATE [Suspect]
     Active Substance: ASENAPINE MALEATE
     Indication: Prophylaxis
     Dosage: 10 MG, PLACE 1 WAFER UNDER THE TONGUE IN THE MORNING AND 2 WAFERS UNDER THE TONGUE IN THE EVENING
     Route: 060
  2. ASENAPINE MALEATE [Suspect]
     Active Substance: ASENAPINE MALEATE
     Indication: Schizophrenia
     Dosage: 20 MG, QHS
     Route: 060
     Dates: start: 202201
  3. ASENAPINE MALEATE [Suspect]
     Active Substance: ASENAPINE MALEATE
     Dosage: 10 MG, QHS
     Route: 060
     Dates: start: 202201
  4. ASENAPINE MALEATE [Suspect]
     Active Substance: ASENAPINE MALEATE
     Dosage: 10 MG, QHS
     Route: 060
     Dates: start: 2021, end: 202110
  5. ASENAPINE MALEATE [Suspect]
     Active Substance: ASENAPINE MALEATE
     Dosage: 20 MG, QHS
     Route: 060
     Dates: start: 2019
  6. ASENAPINE MALEATE [Suspect]
     Active Substance: ASENAPINE MALEATE
     Dosage: 20 MG, QD
     Route: 060
     Dates: start: 2018
  7. ARIPIPRAZOLE [Suspect]
     Active Substance: ARIPIPRAZOLE
     Indication: Prophylaxis
     Dosage: 20 MG, QHS
     Route: 048
     Dates: start: 202205
  8. ARIPIPRAZOLE [Suspect]
     Active Substance: ARIPIPRAZOLE
     Indication: Schizophrenia
     Dosage: 30 MG, QHS
     Route: 048
     Dates: start: 201912
  9. ARIPIPRAZOLE [Suspect]
     Active Substance: ARIPIPRAZOLE
     Dosage: UNK
     Route: 048
  10. CLOMIPRAMINE [Suspect]
     Active Substance: CLOMIPRAMINE
     Indication: Schizophrenia
     Dosage: 25 MG, TAKE 5 TABLETS IN THE EVENING
     Route: 048
     Dates: start: 201912
  11. CLOMIPRAMINE [Suspect]
     Active Substance: CLOMIPRAMINE
     Dosage: 150 MG, QD
     Route: 048
     Dates: start: 2018
  12. CLOZAPINE [Suspect]
     Active Substance: CLOZAPINE
     Indication: Schizophrenia
     Dosage: 25 MILLIGRAM, 5 TIMES PER DAY, OD
     Dates: start: 20220223, end: 20220224
  13. CLOZAPINE [Suspect]
     Active Substance: CLOZAPINE
     Dosage: 12.5 MILLIGRAM, 5 TIMES PER DAY, OD
     Dates: start: 20220223, end: 20220224
  14. PALIPERIDONE [Concomitant]
     Active Substance: PALIPERIDONE
  15. REXULTI [Concomitant]
     Active Substance: BREXPIPRAZOLE
     Dosage: 3 MG
     Dates: end: 2018
  16. ASCORBIC ACID [Concomitant]
     Active Substance: ASCORBIC ACID
     Dosage: 500 MG
  17. ELEVIT [MINERALS NOS;VITAMINS NOS] [Concomitant]
  18. ATORVASTATIN [Concomitant]
     Active Substance: ATORVASTATIN
     Dosage: 40 MG
  19. GEMFIBROZIL [Concomitant]
     Active Substance: GEMFIBROZIL
     Dosage: 600 MG
  20. RISPERIDONE [Concomitant]
     Active Substance: RISPERIDONE
     Dosage: UNK
     Dates: start: 202111

REACTIONS (13)
  - Lower respiratory tract infection [Unknown]
  - Myocarditis [Recovering/Resolving]
  - Electrocardiogram QT prolonged [Unknown]
  - Leukopenia [Recovered/Resolved]
  - Syncope [Recovered/Resolved]
  - Schizophrenia [Recovered/Resolved]
  - Type 2 diabetes mellitus [Recovering/Resolving]
  - Social anxiety disorder [Unknown]
  - COVID-19 [Recovered/Resolved]
  - Cholelithiasis [Recovered/Resolved]
  - Iron deficiency anaemia [Unknown]
  - Drug ineffective [Unknown]
  - Therapeutic product effect incomplete [Unknown]
